FAERS Safety Report 19039323 (Version 1)
Quarter: 2021Q1

REPORT INFORMATION
  Report Type: Spontaneous
  Country: GB (occurrence: GB)
  Receive Date: 20210322
  Receipt Date: 20210322
  Transmission Date: 20210420
  Serious: Yes (Hospitalization)
  Sender: FDA-Public Use
  Company Number: GB-ROCHE-2794102

PATIENT
  Age: 66 Year
  Sex: Male

DRUGS (2)
  1. DEXAMETHASONE. [Suspect]
     Active Substance: DEXAMETHASONE
     Indication: CORONAVIRUS INFECTION
     Route: 065
     Dates: start: 20210124, end: 20210203
  2. TOCILIZUMAB. [Suspect]
     Active Substance: TOCILIZUMAB
     Indication: CORONAVIRUS INFECTION
     Route: 065
     Dates: start: 20210128

REACTIONS (6)
  - Diabetes mellitus [Recovered/Resolved]
  - Infection [Recovered/Resolved]
  - Brain abscess [Recovering/Resolving]
  - Aspergillus infection [Recovered/Resolved]
  - Sinusitis [Recovered/Resolved]
  - Fungal infection [Recovered/Resolved]

NARRATIVE: CASE EVENT DATE: 20210208
